FAERS Safety Report 15352856 (Version 1)
Quarter: 2018Q3

REPORT INFORMATION
  Report Type: Spontaneous
  Country: US (occurrence: US)
  Receive Date: 20180905
  Receipt Date: 20180905
  Transmission Date: 20181010
  Serious: Yes (Other)
  Sender: FDA-Public Use
  Company Number: US-SA-2018SA239484

PATIENT
  Age: 50 Year
  Sex: Male

DRUGS (1)
  1. RASBURICASE [Suspect]
     Active Substance: RASBURICASE
     Indication: TUMOUR LYSIS SYNDROME

REACTIONS (4)
  - Haemolytic anaemia [Unknown]
  - Hypoxia [Unknown]
  - Methaemoglobinaemia [Unknown]
  - Hyperkalaemia [Unknown]
